FAERS Safety Report 4809117-0 (Version None)
Quarter: 2005Q4

REPORT INFORMATION
  Report Type: 
  Country: None (occurrence: None)
  Receive Date: 20051024
  Receipt Date: 20051024
  Transmission Date: 20060501
  Serious: Yes (Life-Threatening)
  Sender: FDA-Public Use
  Company Number: None

PATIENT
  Sex: Female
  Weight: 113 kg

DRUGS (1)
  1. LYMPHAZURIN [Suspect]
     Dosage: 1%, ONCE PROCEDURE
     Dates: start: 20051021

REACTIONS (2)
  - ANAPHYLACTIC REACTION [None]
  - PROCEDURAL COMPLICATION [None]
